FAERS Safety Report 4290159-1 (Version None)
Quarter: 2004Q1

REPORT INFORMATION
  Report Type: 
  Country: None (occurrence: None)
  Receive Date: 20040206
  Receipt Date: 20040121
  Transmission Date: 20041129
  Serious: Yes (Hospitalization)
  Sender: FDA-Public Use
  Company Number: 2004-06590

PATIENT
  Age: 48 Year
  Sex: Male
  Weight: 98 kg

DRUGS (4)
  1. EMTRICITABINE [Suspect]
     Indication: HIV INFECTION
     Dates: start: 20021017, end: 20040115
  2. DIDANOSINE [Suspect]
     Indication: HIV INFECTION
     Dosage: 400 MG QD PO
     Route: 048
     Dates: start: 20021017, end: 20040115
  3. EFAVIRENZ [Suspect]
     Indication: HIV INFECTION
     Dosage: 600 MG QD PO
     Route: 048
     Dates: start: 20021017, end: 20040115
  4. CO-TRIMOXAZOLE [Concomitant]

REACTIONS (5)
  - ASTHENIA [None]
  - GAIT DISTURBANCE [None]
  - PARAESTHESIA [None]
  - PYREXIA [None]
  - SENSORY DISTURBANCE [None]
